FAERS Safety Report 9698609 (Version 2)
Quarter: 2013Q4

REPORT INFORMATION
  Report Type: Spontaneous
  Country: HR (occurrence: HR)
  Receive Date: 20131120
  Receipt Date: 20131126
  Transmission Date: 20140711
  Serious: Yes (Other)
  Sender: FDA-Public Use
  Company Number: HR-GLAXOSMITHKLINE-B0946542A

PATIENT
  Age: 73 Year
  Sex: Male

DRUGS (2)
  1. REVOLADE [Suspect]
     Indication: IMMUNE THROMBOCYTOPENIC PURPURA
     Dosage: 50MG PER DAY
     Route: 048
     Dates: start: 20130629, end: 20130822
  2. IMMUNOSUPPRESSIVE [Concomitant]
     Indication: IMMUNE THROMBOCYTOPENIC PURPURA

REACTIONS (2)
  - Pneumonia [Recovered/Resolved]
  - Gamma-glutamyltransferase increased [Recovered/Resolved]
